FAERS Safety Report 9053912 (Version 2)
Quarter: 2013Q4

REPORT INFORMATION
  Report Type: Spontaneous
  Country: US (occurrence: US)
  Receive Date: 20130206
  Receipt Date: 20131021
  Transmission Date: 20140711
  Serious: Yes (Hospitalization, Other)
  Sender: FDA-Public Use
  Company Number: US-BAYER-2013-014036

PATIENT
  Age: 44 Year
  Sex: Female
  Weight: 54.42 kg

DRUGS (1)
  1. MIRENA [Suspect]
     Indication: CONTRACEPTION
     Dosage: 20 MCG/24HR, CONT
     Route: 015
     Dates: start: 200609, end: 200808

REACTIONS (9)
  - Embedded device [None]
  - Gastric haemorrhage [None]
  - Genital haemorrhage [None]
  - Injury [None]
  - Pelvic pain [None]
  - Abdominal pain [None]
  - Scar [None]
  - Scar pain [None]
  - Infection [None]
